FAERS Safety Report 7560279-4 (Version None)
Quarter: 2011Q2

REPORT INFORMATION
  Report Type: 
  Country: None (occurrence: None)
  Receive Date: 20110614
  Receipt Date: 20110603
  Transmission Date: 20111010
  Serious: Yes (Hospitalization)
  Sender: FDA-Public Use
  Company Number: TRP_07762_2011

PATIENT
  Age: 62 Year
  Sex: Male

DRUGS (5)
  1. CARVEDILOL [Concomitant]
  2. IRBESARTAN [Concomitant]
  3. PEGINTERFERON ALFA (PEGYLATED INTERFERON ALPHA) [Suspect]
     Indication: HEPATITIS C
     Dosage: (180 UG 1X/WEEK SUBCUTANEOUS)
     Route: 058
  4. ASPIRIN [Concomitant]
  5. RIBAVIRIN [Suspect]
     Indication: HEPATITIS C
     Dosage: (MG DAILY)

REACTIONS (2)
  - SYNCOPE [None]
  - ANAEMIA [None]
